FAERS Safety Report 16074778 (Version 1)
Quarter: 2019Q1

REPORT INFORMATION
  Report Type: Spontaneous
  Country: US (occurrence: US)
  Receive Date: 20190314
  Receipt Date: 20190314
  Transmission Date: 20190418
  Serious: Yes (Other)
  Sender: FDA-Public Use
  Company Number: PHEH2019US010325

PATIENT

DRUGS (2)
  1. PENICILLIN G SODIUM. [Suspect]
     Active Substance: PENICILLIN G SODIUM
     Indication: PRODUCT USED FOR UNKNOWN INDICATION
     Dosage: OF 3 CAPSULES IN THE MORNING AND 2 CAPSULES IN THE EVENING
     Route: 065
  2. DILANTIN [Suspect]
     Active Substance: PHENYTOIN
     Indication: SEIZURE
     Dosage: 5 DF, QD (3 CAPSULES IN MORNING AND 2 CAPSULES IN EVENING)
     Route: 048
     Dates: start: 20190114

REACTIONS (2)
  - Drug hypersensitivity [Unknown]
  - Epilepsy [Unknown]
